FAERS Safety Report 5413683-4 (Version None)
Quarter: 2007Q3

REPORT INFORMATION
  Report Type: 
  Country: None (occurrence: None)
  Receive Date: 20070814
  Receipt Date: 20070809
  Transmission Date: 20080115
  Serious: Yes (Other)
  Sender: FDA-Public Use
  Company Number: A0643450A

PATIENT
  Age: 62 Year
  Sex: Female

DRUGS (9)
  1. REQUIP [Suspect]
     Indication: RESTLESS LEGS SYNDROME
     Route: 048
     Dates: start: 20060101, end: 20070101
  2. DARVOCET [Concomitant]
  3. NORVASC [Concomitant]
     Dosage: 5MG PER DAY
  4. METOPROLOL SUCCINATE [Concomitant]
     Dosage: 50MG TWICE PER DAY
  5. HYDROCHLOROTHIAZIDE [Concomitant]
     Dosage: 25MG PER DAY
  6. ASPIRIN [Concomitant]
  7. EFFEXOR [Concomitant]
     Dosage: 150MG TWICE PER DAY
  8. ACIPHEX [Concomitant]
     Dosage: 20MG TWICE PER DAY
  9. VYTORIN [Concomitant]

REACTIONS (11)
  - ALCOHOL USE [None]
  - ECONOMIC PROBLEM [None]
  - FEAR [None]
  - FEELING GUILTY [None]
  - FEELING OF DESPAIR [None]
  - FIBROADENOMA OF BREAST [None]
  - PATHOLOGICAL GAMBLING [None]
  - ROTATOR CUFF REPAIR [None]
  - STRESS [None]
  - SUICIDAL IDEATION [None]
  - SUICIDE ATTEMPT [None]
